FAERS Safety Report 6843912-1 (Version None)
Quarter: 2010Q3

REPORT INFORMATION
  Report Type: 
  Country: None (occurrence: None)
  Receive Date: 20100714
  Receipt Date: 20100714
  Transmission Date: 20110219
  Serious: Yes (Hospitalization)
  Sender: FDA-Public Use
  Company Number: None

PATIENT
  Sex: Female
  Weight: 57.8 kg

DRUGS (2)
  1. CARBOPLATIN [Suspect]
     Dosage: 3405 MG
     Dates: end: 20100618
  2. TAXOL [Suspect]
     Dosage: 1029 MG

REACTIONS (2)
  - FATIGUE [None]
  - PLATELET COUNT ABNORMAL [None]
